FAERS Safety Report 4906246-8 (Version None)
Quarter: 2006Q1

REPORT INFORMATION
  Report Type: 
  Country: None (occurrence: None)
  Receive Date: 20060207
  Receipt Date: 20060130
  Transmission Date: 20060701
  Serious: Yes (Hospitalization)
  Sender: FDA-Public Use
  Company Number: 2006015852

PATIENT
  Sex: Male

DRUGS (6)
  1. LYRICA [Suspect]
     Indication: ILL-DEFINED DISORDER
     Dosage: ORAL
     Route: 048
  2. BENALAPRIL (ENALAPRIL) [Concomitant]
  3. HYDROCHLOROTHIAZIDE [Concomitant]
  4. DURAGESIC [Concomitant]
  5. NORTRIPTYLINE HCL [Concomitant]
  6. ARTHROTEC [Concomitant]

REACTIONS (1)
  - GYNAECOMASTIA [None]
